FAERS Safety Report 8282893-3 (Version None)
Quarter: 2012Q2

REPORT INFORMATION
  Report Type: 
  Country: None (occurrence: None)
  Receive Date: 20120413
  Receipt Date: 20120404
  Transmission Date: 20120825
  Serious: Yes (Other)
  Sender: FDA-Public Use
  Company Number: US-ASTRAZENECA-2012SE22553

PATIENT
  Age: 74 Year
  Sex: Female

DRUGS (3)
  1. NEXIUM [Suspect]
     Indication: GASTRIC HAEMORRHAGE
     Route: 048
  2. WARFARIN SODIUM [Concomitant]
  3. NEXIUM [Suspect]
     Indication: DYSPEPSIA
     Route: 048

REACTIONS (2)
  - OFF LABEL USE [None]
  - THROMBOSIS [None]
